FAERS Safety Report 7247544-5 (Version None)
Quarter: 2011Q1

REPORT INFORMATION
  Report Type: 
  Country: None (occurrence: None)
  Receive Date: 20110127
  Receipt Date: 20110124
  Transmission Date: 20110831
  Serious: Yes (Death, Other)
  Sender: FDA-Public Use
  Company Number: PHHY2011BR05507

PATIENT
  Sex: Female

DRUGS (4)
  1. FOLIC ACID [Concomitant]
     Dosage: 1 DF, QD
  2. SIFROL [Suspect]
     Indication: PARKINSON'S DISEASE
     Dosage: 1 DF, Q12H
     Route: 048
  3. OSCAL 500-D [Concomitant]
     Dosage: 1 DF, QD
  4. STALEVO 100 [Suspect]
     Indication: PARKINSON'S DISEASE
     Dosage: 1 DF, Q12H
     Route: 048

REACTIONS (5)
  - PARKINSON'S DISEASE [None]
  - CARDIO-RESPIRATORY ARREST [None]
  - HYPERTHERMIA [None]
  - MULTI-ORGAN FAILURE [None]
  - DEMENTIA ALZHEIMER'S TYPE [None]
